FAERS Safety Report 5356572-6 (Version None)
Quarter: 2007Q2

REPORT INFORMATION
  Report Type: 
  Country: None (occurrence: None)
  Receive Date: 20070613
  Receipt Date: 20070605
  Transmission Date: 20071010
  Serious: Yes (Other)
  Sender: FDA-Public Use
  Company Number: PHBS2007JP09428

PATIENT
  Age: 60 Year
  Sex: Female

DRUGS (6)
  1. ZOMETA [Suspect]
     Indication: METASTASES TO BONE
     Route: 042
  2. LASIX [Concomitant]
  3. OXYCONTIN [Concomitant]
  4. TS 1 [Concomitant]
  5. DUROTEP JANSSEN [Concomitant]
  6. PREDNISOLONE [Concomitant]

REACTIONS (2)
  - DENTAL TREATMENT [None]
  - OSTEONECROSIS [None]
